FAERS Safety Report 4920424-3 (Version None)
Quarter: 2006Q1

REPORT INFORMATION
  Report Type: 
  Country: None (occurrence: None)
  Receive Date: 20060223
  Receipt Date: 20051017
  Transmission Date: 20060701
  Serious: Yes (Hospitalization, Other)
  Sender: FDA-Public Use
  Company Number: US-MERCK-0510USA07684

PATIENT
  Age: 68 Year
  Sex: Female
  Weight: 64 kg

DRUGS (7)
  1. VIOXX [Suspect]
     Indication: ARTHRITIS
     Route: 048
     Dates: start: 20000501, end: 20040501
  2. CLORAZEPATE DIPOTASSIUM [Concomitant]
     Route: 065
     Dates: start: 20000501
  3. PRILOSEC [Concomitant]
     Route: 065
     Dates: start: 20000501, end: 20041001
  4. HYDROCODONE BITARTRATE [Concomitant]
     Route: 065
     Dates: start: 20000501, end: 20041001
  5. [THERAPY UNSPECIFIED] [Concomitant]
     Route: 065
  6. ATROVENT [Concomitant]
     Route: 065
  7. NEXIUM [Concomitant]
     Route: 065

REACTIONS (11)
  - ANXIETY [None]
  - ARTERIOSCLEROSIS [None]
  - BLOOD CHOLESTEROL INCREASED [None]
  - BLOOD TRIGLYCERIDES INCREASED [None]
  - CEREBROVASCULAR ACCIDENT [None]
  - DIABETES MELLITUS [None]
  - DISTURBANCE IN ATTENTION [None]
  - FALL [None]
  - HYPERTENSION [None]
  - LOWER LIMB FRACTURE [None]
  - SLEEP DISORDER [None]
